FAERS Safety Report 12708855 (Version 2)
Quarter: 2017Q1

REPORT INFORMATION
  Report Type: Spontaneous
  Country: US (occurrence: US)
  Receive Date: 20160901
  Receipt Date: 20170322
  Transmission Date: 20170428
  Serious: No
  Sender: FDA-Public Use
  Company Number: US-JAZZ-2016-US-008175

PATIENT
  Age: 24 Year
  Sex: Female
  Weight: 45.35 kg

DRUGS (25)
  1. XYREM [Suspect]
     Active Substance: SODIUM OXYBATE
     Indication: NARCOLEPSY
     Dosage: 2.25 G, BID
     Route: 048
     Dates: start: 201604, end: 201604
  2. SUDAFED 24 HOUR ER [Concomitant]
  3. TURMERIC [Concomitant]
     Active Substance: TURMERIC
  4. CLARITIN [Concomitant]
     Active Substance: LORATADINE
  5. DOXYCYCLINE HYCLATE. [Concomitant]
     Active Substance: DOXYCYCLINE HYCLATE
  6. IRON [Concomitant]
     Active Substance: IRON
  7. ZINC GLUCONATE [Concomitant]
     Active Substance: ZINC GLUCONATE
  8. CALCIUM CARBONATE. [Concomitant]
     Active Substance: CALCIUM CARBONATE
  9. XYREM [Suspect]
     Active Substance: SODIUM OXYBATE
     Dosage: 3 G, FIRST DOSE
     Route: 048
     Dates: start: 2016, end: 201605
  10. XYREM [Suspect]
     Active Substance: SODIUM OXYBATE
     Dosage: 2.75 G, SECOND DOSE
     Route: 048
     Dates: start: 2016, end: 201605
  11. GLUCOSAMINE SULFATE [Concomitant]
     Active Substance: GLUCOSAMINE SULFATE
  12. CHELATED MAGNESIUM [Concomitant]
  13. PRENATAL VITAMINS [Concomitant]
     Active Substance: VITAMINS
  14. SUDAFED PE CONGESTION [Concomitant]
     Active Substance: PHENYLEPHRINE HYDROCHLORIDE
  15. VITAMIN C [Concomitant]
     Active Substance: ASCORBIC ACID
  16. MODAFINIL. [Concomitant]
     Active Substance: MODAFINIL
  17. VITAMIN B COMPLEX [Concomitant]
     Active Substance: CYANOCOBALAMIN\DEXPANTHENOL\NIACINAMIDE\PYRIDOXINE HYDROCHLORIDE\RIBOFLAVIN 5^-PHOSPHATE SODIUM\THIAMINE HYDROCHLORIDE\VITAMIN B COMPLEX
  18. COCONUT OIL [Concomitant]
     Active Substance: COCONUT OIL
  19. JUICE PLUS [Concomitant]
     Active Substance: DIETARY SUPPLEMENT
  20. MULTIVITAMINS [Concomitant]
     Active Substance: VITAMINS
  21. PROBIOTIC FORMULA [Concomitant]
  22. DOXYCYCLINE. [Concomitant]
     Active Substance: DOXYCYCLINE
  23. XYREM [Suspect]
     Active Substance: SODIUM OXYBATE
     Indication: CATAPLEXY
     Dosage: 3 G, BID
     Route: 048
     Dates: start: 201604, end: 2016
  24. BIOTIN [Concomitant]
     Active Substance: BIOTIN
  25. FISH OIL CONCENTRATE [Concomitant]
     Active Substance: FISH OIL

REACTIONS (7)
  - Unevaluable event [Unknown]
  - Emotional disorder [Unknown]
  - Decreased appetite [Unknown]
  - Hyperhidrosis [Unknown]
  - Depression [Unknown]
  - Dyspnoea [Unknown]
  - Feeling hot [Unknown]

NARRATIVE: CASE EVENT DATE: 2016
